FAERS Safety Report 24603716 (Version 2)
Quarter: 2024Q4

REPORT INFORMATION
  Report Type: Spontaneous
  Country: US (occurrence: US)
  Receive Date: 20241111
  Receipt Date: 20241026
  Transmission Date: 20250115
  Serious: No
  Sender: TARO
  Company Number: US-TARO PHARMACEUTICALS USA INC.-2024TAR01337

PATIENT

DRUGS (1)
  1. ADAPALENE [Suspect]
     Active Substance: ADAPALENE
     Indication: Rash
     Dosage: UNK, DAILY
     Route: 061
     Dates: start: 202403, end: 2024

REACTIONS (2)
  - Acne [Unknown]
  - Scar [Unknown]

NARRATIVE: CASE EVENT DATE: 20240701
